FAERS Safety Report 11145557 (Version 1)
Quarter: 2015Q2

REPORT INFORMATION
  Report Type: Spontaneous
  Country: GB (occurrence: GB)
  Receive Date: 20150528
  Receipt Date: 20150528
  Transmission Date: 20150821
  Serious: Yes (Other)
  Sender: FDA-Public Use
  Company Number: GB-TEVA-565630ACC

PATIENT
  Sex: Female
  Weight: 51.71 kg

DRUGS (3)
  1. ALPHAGAN P [Concomitant]
     Active Substance: BRIMONIDINE TARTRATE
     Dates: end: 201503
  2. ERYTHROMYCIN. [Suspect]
     Active Substance: ERYTHROMYCIN
     Indication: DENTAL CARE
     Dosage: 2000 MILLIGRAM DAILY;
     Route: 048
     Dates: start: 20150501, end: 20150504
  3. LATANOPROST. [Concomitant]
     Active Substance: LATANOPROST
     Dosage: NIGHTLY. ONGOING.

REACTIONS (9)
  - Vomiting [Recovered/Resolved]
  - Abdominal pain upper [Recovered/Resolved]
  - Nausea [Recovered/Resolved]
  - Pharyngeal oedema [Recovered/Resolved with Sequelae]
  - Renal pain [Recovered/Resolved]
  - Hepatic pain [Recovered/Resolved]
  - Eructation [Recovered/Resolved with Sequelae]
  - Fatigue [Recovered/Resolved]
  - Pyrexia [Recovered/Resolved]

NARRATIVE: CASE EVENT DATE: 20150501
